FAERS Safety Report 17929361 (Version 3)
Quarter: 2022Q3

REPORT INFORMATION
  Report Type: Report from Study
  Country: CA (occurrence: CA)
  Receive Date: 20200623
  Receipt Date: 20220802
  Transmission Date: 20221026
  Serious: Yes (Death, Hospitalization, Other)
  Sender: FDA-Public Use
  Company Number: None

PATIENT
  Age: 59 Year
  Sex: Male
  Weight: 80 kg

DRUGS (25)
  1. ATORVASTATIN [Suspect]
     Active Substance: ATORVASTATIN
     Indication: Type IIa hyperlipidaemia
  2. EZETIMIBE [Suspect]
     Active Substance: EZETIMIBE
     Indication: Type IIa hyperlipidaemia
  3. ROSUVASTATIN CALCIUM [Suspect]
     Active Substance: ROSUVASTATIN CALCIUM
     Indication: Type IIa hyperlipidaemia
     Dosage: 1 EVERY 1 DAYS
     Route: 048
  4. SIMVASTATIN [Suspect]
     Active Substance: SIMVASTATIN
     Indication: Type IIa hyperlipidaemia
  5. EVOLOCUMAB [Suspect]
     Active Substance: EVOLOCUMAB
     Indication: Type IIa hyperlipidaemia
     Dosage: 1 ML SINGLE USE PREFILLED SYRINGE AND AUTOINJECTOR
     Route: 058
  6. LOMITAPIDE [Suspect]
     Active Substance: LOMITAPIDE
     Indication: Type IIa hyperlipidaemia
  7. LOVASTATIN [Suspect]
     Active Substance: LOVASTATIN
     Indication: Type IIa hyperlipidaemia
  8. PROBUCOL [Suspect]
     Active Substance: PROBUCOL
     Indication: Type IIa hyperlipidaemia
  9. EZETIMIBE [Suspect]
     Active Substance: EZETIMIBE
     Indication: Type IIa hyperlipidaemia
     Dosage: 1 EVERY 1 DAYS
     Route: 048
  10. ZOCOR [Suspect]
     Active Substance: SIMVASTATIN
     Indication: Type IIa hyperlipidaemia
  11. AMOXICILLIN\CLAVULANIC ACID [Concomitant]
     Active Substance: AMOXICILLIN\CLAVULANIC ACID
  12. ASPIRIN [Concomitant]
     Active Substance: ASPIRIN
  13. CEFTRIAXONE SODIUM [Concomitant]
     Active Substance: CEFTRIAXONE SODIUM
  14. CLOPIDOGREL [Concomitant]
     Active Substance: CLOPIDOGREL BISULFATE
  15. DILAUDID [Concomitant]
     Active Substance: HYDROMORPHONE HYDROCHLORIDE
  16. FUROSEMIDE [Concomitant]
     Active Substance: FUROSEMIDE
  17. IPRATROPIUM [Concomitant]
     Active Substance: IPRATROPIUM
  18. LASIX [Concomitant]
     Active Substance: FUROSEMIDE
  19. METOPROLOL [Concomitant]
     Active Substance: METOPROLOL
  20. PANTOPRAZOLE [Concomitant]
     Active Substance: PANTOPRAZOLE
  21. POTASSIUM CHLORIDE [Concomitant]
     Active Substance: POTASSIUM CHLORIDE
  22. PREGABALIN [Concomitant]
     Active Substance: PREGABALIN
  23. ALBUTEROL [Concomitant]
     Active Substance: ALBUTEROL
  24. TYLENOL [Concomitant]
     Active Substance: ACETAMINOPHEN
  25. LOMITAPIDE [Suspect]
     Active Substance: LOMITAPIDE
     Indication: Type IIa hyperlipidaemia
     Dosage: 1 EVERY 1 DAYS
     Route: 048

REACTIONS (8)
  - Type IIa hyperlipidaemia [Fatal]
  - Disease progression [Fatal]
  - Abdominal pain [Fatal]
  - Cholecystitis acute [Fatal]
  - Hypotension [Fatal]
  - Liver injury [Fatal]
  - Nausea [Fatal]
  - Pleural effusion [Fatal]
